FAERS Safety Report 12947177 (Version 1)
Quarter: 2016Q4

REPORT INFORMATION
  Report Type: Spontaneous
  Country: US (occurrence: US)
  Receive Date: 20161116
  Receipt Date: 20161116
  Transmission Date: 20170207
  Serious: Yes (Death)
  Sender: FDA-Public Use
  Company Number: None

PATIENT
  Age: 90 Year
  Sex: Male
  Weight: 83.08 kg

DRUGS (8)
  1. FAMOTIDINE. [Concomitant]
     Active Substance: FAMOTIDINE
  2. METOPROLOL. [Concomitant]
     Active Substance: METOPROLOL
  3. MAGNESIUM [Concomitant]
     Active Substance: MAGNESIUM
  4. FLUCONAZOLE 200 MG TABLET GLENMARK PHARMA [Suspect]
     Active Substance: FLUCONAZOLE
     Indication: ANAL FUNGAL INFECTION
     Dosage: 1 PILL  ONLY BY MOUTH
     Route: 048
     Dates: start: 20161021, end: 20161021
  5. VITAMIN D3 [Concomitant]
     Active Substance: CHOLECALCIFEROL
  6. LANTUS [Concomitant]
     Active Substance: INSULIN GLARGINE
  7. SIMVASTATIN. [Concomitant]
     Active Substance: SIMVASTATIN
  8. XARELTO [Concomitant]
     Active Substance: RIVAROXABAN

REACTIONS (3)
  - Chest pain [None]
  - Dyspnoea [None]
  - Cardiac arrest [None]

NARRATIVE: CASE EVENT DATE: 20161021
